FAERS Safety Report 9125822 (Version 6)
Quarter: 2013Q2

REPORT INFORMATION
  Report Type: Report from Study
  Country: US (occurrence: US)
  Receive Date: 20130227
  Receipt Date: 20130605
  Transmission Date: 20140414
  Serious: Yes (Hospitalization, Other)
  Sender: FDA-Public Use
  Company Number: US-ABBOTT-13P-163-1053228-00

PATIENT
  Age: 84 Year
  Sex: Female
  Weight: 54.48 kg

DRUGS (15)
  1. HUMIRA [Suspect]
     Indication: PSORIASIS
     Dates: start: 20121120, end: 20130212
  2. HUMIRA [Suspect]
     Dates: start: 201301, end: 201302
  3. STEROIDS [Suspect]
     Indication: PRODUCT USED FOR UNKNOWN INDICATION
     Dates: start: 20130209, end: 20130213
  4. ALPRAZOLAM [Concomitant]
     Indication: ANXIETY
  5. NAMENDA [Concomitant]
     Indication: DEMENTIA ALZHEIMER^S TYPE
  6. TRAMADOL [Concomitant]
     Indication: PAIN
     Dosage: EVERY 6 HOURS AS NEEDED
  7. CARVEDILOL [Concomitant]
     Indication: CARDIAC DISORDER
  8. CARVEDILOL [Concomitant]
     Indication: HYPERTENSION
  9. BUSPIRONE [Concomitant]
     Indication: DEPRESSION
  10. SIMVASTATIN [Concomitant]
     Indication: BLOOD CHOLESTEROL INCREASED
  11. CELEBREX [Concomitant]
     Indication: PAIN
  12. GABAPENTIN [Concomitant]
     Indication: NEURALGIA
     Dosage: AT BEDTIME
  13. CARMAX [Concomitant]
     Indication: PRODUCT USED FOR UNKNOWN INDICATION
  14. FLUOCINOLONE [Concomitant]
     Indication: PRODUCT USED FOR UNKNOWN INDICATION
     Dosage: SCALP OIL AT BEDTIME
     Route: 061
  15. COUMADIN [Concomitant]
     Indication: ANTICOAGULANT THERAPY

REACTIONS (7)
  - Atrial fibrillation [Recovered/Resolved]
  - Malaise [Unknown]
  - Haemorrhoids [Unknown]
  - Pain [Recovering/Resolving]
  - Memory impairment [Unknown]
  - Cerebral disorder [Unknown]
  - Chest pain [Recovered/Resolved]
